FAERS Safety Report 14661256 (Version 1)
Quarter: 2018Q1

REPORT INFORMATION
  Report Type: Spontaneous
  Country: TR (occurrence: TR)
  Receive Date: 20180320
  Receipt Date: 20180320
  Transmission Date: 20180509
  Serious: Yes (Death, Other)
  Sender: FDA-Public Use
  Company Number: TR-EDENBRIDGE PHARMACEUTICALS, LLC-TR-2018EDE000047

PATIENT
  Age: 46 Year
  Sex: Female

DRUGS (4)
  1. WARFARIN [Concomitant]
     Active Substance: WARFARIN
     Indication: VENA CAVA THROMBOSIS
  2. PREDNISOLONE SODIUM PHOSPHATE. [Suspect]
     Active Substance: PREDNISOLONE SODIUM PHOSPHATE
     Indication: FACTOR VIII DEFICIENCY
     Dosage: 1 MG/KG, QD
     Route: 042
  3. WARFARIN [Concomitant]
     Active Substance: WARFARIN
     Indication: CEREBRAL ISCHAEMIA
     Dosage: UNK
  4. CYCLOPHOSPHAMIDE. [Suspect]
     Active Substance: CYCLOPHOSPHAMIDE
     Indication: FACTOR VIII DEFICIENCY
     Dosage: 500 MG, QD
     Route: 042

REACTIONS (2)
  - Abdominal abscess [Unknown]
  - Sepsis [Fatal]
